FAERS Safety Report 15539991 (Version 2)
Quarter: 2018Q4

REPORT INFORMATION
  Report Type: Spontaneous
  Country: US (occurrence: US)
  Receive Date: 20181023
  Receipt Date: 20181113
  Transmission Date: 20190205
  Serious: No
  Sender: FDA-Public Use
  Company Number: US-AMGEN-USASP2018145151

PATIENT
  Age: 45 Year
  Sex: Female

DRUGS (4)
  1. ENBREL [Suspect]
     Active Substance: ETANERCEPT
     Indication: PRODUCT USED FOR UNKNOWN INDICATION
     Dosage: UNK
     Route: 065
  2. HUMIRA [Suspect]
     Active Substance: ADALIMUMAB
     Dosage: 40 MG, UNK
     Route: 058
     Dates: start: 20181006, end: 20181006
  3. HUMIRA [Suspect]
     Active Substance: ADALIMUMAB
     Dosage: 40 MG, Q2WK
     Route: 058
     Dates: start: 201810, end: 201810
  4. HUMIRA [Suspect]
     Active Substance: ADALIMUMAB
     Indication: PSORIATIC ARTHROPATHY
     Dosage: 80 MG, QD
     Route: 058
     Dates: start: 20180929, end: 20180929

REACTIONS (10)
  - Anxiety [Unknown]
  - Mobility decreased [Unknown]
  - Peripheral swelling [Not Recovered/Not Resolved]
  - Musculoskeletal stiffness [Not Recovered/Not Resolved]
  - Arthritis [Unknown]
  - Impaired self-care [Unknown]
  - Swelling [Not Recovered/Not Resolved]
  - Rubber sensitivity [Unknown]
  - Depression [Unknown]
  - Neck pain [Unknown]

NARRATIVE: CASE EVENT DATE: 2018
